FAERS Safety Report 20862920 (Version 1)
Quarter: 2022Q2

REPORT INFORMATION
  Report Type: Report from Study
  Country: JP (occurrence: JP)
  Receive Date: 20220523
  Receipt Date: 20220523
  Transmission Date: 20220721
  Serious: Yes (Other)
  Sender: FDA-Public Use
  Company Number: JP-BAYER-2022A063269

PATIENT
  Age: 50 Year
  Sex: Male

DRUGS (2)
  1. VITRAKVI [Suspect]
     Active Substance: LAROTRECTINIB
     Dosage: 100 MG ONE TIME
     Route: 048
     Dates: start: 20220415, end: 20220429
  2. VITRAKVI [Suspect]
     Active Substance: LAROTRECTINIB
     Dosage: 100 MG ONE TIME
     Route: 048
     Dates: start: 20220512

REACTIONS (1)
  - Neuropathy peripheral [Recovered/Resolved]

NARRATIVE: CASE EVENT DATE: 20220421
